FAERS Safety Report 21734711 (Version 1)
Quarter: 2022Q4

REPORT INFORMATION
  Report Type: Spontaneous
  Country: US (occurrence: US)
  Receive Date: 20221215
  Receipt Date: 20221215
  Transmission Date: 20230113
  Serious: No
  Sender: FDA-Public Use
  Company Number: US-R-PHARM US LLC-2022RPM00002

PATIENT
  Sex: Female
  Weight: 63.492 kg

DRUGS (2)
  1. IXEMPRA [Suspect]
     Active Substance: IXABEPILONE
     Indication: Breast cancer metastatic
     Dosage: 40 MG/M2
  2. IXEMPRA [Suspect]
     Active Substance: IXABEPILONE
     Indication: Breast cancer metastatic
     Dosage: 40 MG/M2

REACTIONS (2)
  - Dizziness [Recovered/Resolved]
  - Chills [Recovered/Resolved]
